FAERS Safety Report 24267703 (Version 1)
Quarter: 2024Q3

REPORT INFORMATION
  Report Type: Report from Study
  Country: US (occurrence: US)
  Receive Date: 20240830
  Receipt Date: 20240830
  Transmission Date: 20241016
  Serious: Yes (Hospitalization)
  Sender: TEVA
  Company Number: US-TEVA-VS-3174700

PATIENT
  Age: 45 Year
  Sex: Male
  Weight: 77.27 kg

DRUGS (10)
  1. CLOZAPINE [Suspect]
     Active Substance: CLOZAPINE
     Indication: Schizophrenia
     Dosage: TIME INTERVAL: 0.33333333 DAYS: 300 MG
     Route: 065
     Dates: start: 202305
  2. CLOZAPINE [Suspect]
     Active Substance: CLOZAPINE
     Indication: Schizophrenia
     Dosage: 100 MG IN THE MORNING AND 400 MG AT BEDTIME
     Route: 065
     Dates: start: 2024
  3. VITAMIN D [Concomitant]
     Active Substance: VITAMIN D NOS
     Indication: Product used for unknown indication
     Route: 065
  4. RISPERIDONE [Concomitant]
     Active Substance: RISPERIDONE
     Indication: Product used for unknown indication
     Route: 065
  5. MONTELUKAST [Concomitant]
     Active Substance: MONTELUKAST SODIUM
     Indication: Product used for unknown indication
     Route: 065
  6. OMEPRAZOLE [Concomitant]
     Active Substance: OMEPRAZOLE
     Indication: Product used for unknown indication
     Route: 065
  7. LISINOPRIL [Concomitant]
     Active Substance: LISINOPRIL
     Indication: Product used for unknown indication
     Route: 065
  8. ATENOLOL [Concomitant]
     Active Substance: ATENOLOL
     Indication: Product used for unknown indication
     Route: 065
  9. VITAMINS [Concomitant]
     Active Substance: VITAMINS
     Indication: Product used for unknown indication
     Route: 065
  10. BENZTROPINE [Concomitant]
     Active Substance: BENZTROPINE
     Indication: Product used for unknown indication

REACTIONS (7)
  - Gastric ulcer [Unknown]
  - Nausea [Unknown]
  - Chronic gastritis [Unknown]
  - Abdominal distension [Unknown]
  - Vomiting [Unknown]
  - Obstruction gastric [Unknown]
  - Oesophageal wall hypertrophy [Unknown]

NARRATIVE: CASE EVENT DATE: 20240301
